FAERS Safety Report 9709400 (Version 2)
Quarter: 2015Q1

REPORT INFORMATION
  Report Type: Spontaneous
  Country: US (occurrence: US)
  Receive Date: 20131126
  Receipt Date: 20150223
  Transmission Date: 20150721
  Serious: Yes (Life-Threatening, Hospitalization, Other)
  Sender: FDA-Public Use
  Company Number: US-JNJFOC-20131112269

PATIENT
  Age: 8 Month
  Weight: 8.9 kg

DRUGS (6)
  1. ACETAMINOPHEN. [Suspect]
     Active Substance: ACETAMINOPHEN
     Route: 048
  2. OFLOXACIN. [Concomitant]
     Active Substance: OFLOXACIN
     Indication: PRODUCT USED FOR UNKNOWN INDICATION
     Dosage: 5 DROPS IN EACH EAR
     Route: 001
  3. ACETAMINOPHEN. [Suspect]
     Active Substance: ACETAMINOPHEN
     Indication: POSTOPERATIVE CARE
     Route: 054
  4. ACETAMINOPHEN. [Suspect]
     Active Substance: ACETAMINOPHEN
     Route: 048
  5. ACETAMINOPHEN. [Suspect]
     Active Substance: ACETAMINOPHEN
     Indication: PAIN
     Dosage: 80MG/0.8ML, EVERY 4 TO 6 HOURS
     Route: 048
  6. ACETAMINOPHEN. [Suspect]
     Active Substance: ACETAMINOPHEN
     Indication: POSTOPERATIVE CARE
     Dosage: TOTAL OF TWO DOSES
     Route: 048

REACTIONS (14)
  - Generalised tonic-clonic seizure [Recovered/Resolved]
  - Blood lactic acid increased [Recovered/Resolved]
  - Blood urea increased [Recovered/Resolved]
  - Acute hepatic failure [Recovered/Resolved]
  - Blood creatinine increased [Recovered/Resolved]
  - Prothrombin time prolonged [Recovered/Resolved]
  - Activated partial thromboplastin time prolonged [Recovered/Resolved]
  - Toxicity to various agents [Recovered/Resolved]
  - Hepatic enzyme increased [Recovered/Resolved]
  - Lethargy [Recovered/Resolved]
  - Hepatitis acute [Recovered/Resolved]
  - Metabolic acidosis [Recovered/Resolved]
  - Mouth haemorrhage [Recovered/Resolved]
  - International normalised ratio increased [Recovered/Resolved]
